FAERS Safety Report 11322852 (Version 3)
Quarter: 2015Q3

REPORT INFORMATION
  Report Type: Spontaneous
  Country: US (occurrence: US)
  Receive Date: 20150730
  Receipt Date: 20150930
  Transmission Date: 20151125
  Serious: No
  Sender: FDA-Public Use
  Company Number: US-BIOGENIDEC-2015BI104211

PATIENT
  Age: 45 Year
  Sex: Male

DRUGS (6)
  1. VITAMIN D [Concomitant]
     Active Substance: CHOLECALCIFEROL
  2. PERCOCET [Concomitant]
     Active Substance: ACETAMINOPHEN\OXYCODONE HYDROCHLORIDE
     Dates: start: 2012
  3. TYSABRI [Suspect]
     Active Substance: NATALIZUMAB
     Indication: MULTIPLE SCLEROSIS
     Route: 042
     Dates: start: 2012
  4. AMPYRA [Concomitant]
     Active Substance: DALFAMPRIDINE
     Indication: GAIT DISTURBANCE
     Route: 048
     Dates: start: 2012, end: 201505
  5. RESTORIL [Concomitant]
     Active Substance: TEMAZEPAM
     Dates: start: 2012
  6. OXYTOCIN. [Concomitant]
     Active Substance: OXYTOCIN
     Dates: start: 2012

REACTIONS (8)
  - Gait disturbance [Unknown]
  - Dental caries [Not Recovered/Not Resolved]
  - Multiple sclerosis relapse [Unknown]
  - Speech disorder [Unknown]
  - Mobility decreased [Unknown]
  - Clumsiness [Unknown]
  - Fall [Recovered/Resolved]
  - Dysphagia [Not Recovered/Not Resolved]

NARRATIVE: CASE EVENT DATE: 20150504
